FAERS Safety Report 4419518-0 (Version None)
Quarter: 2004Q3

REPORT INFORMATION
  Report Type: 
  Country: None (occurrence: None)
  Receive Date: 20040806
  Receipt Date: 20040806
  Transmission Date: 20050211
  Serious: No
  Sender: FDA-Public Use
  Company Number: None

PATIENT
  Age: 66 Year
  Sex: Female

DRUGS (9)
  1. ENBREL [Suspect]
     Indication: PSORIATIC ARTHROPATHY
     Dosage: SCE BIW
     Dates: start: 20031002
  2. NEURONTIN [Concomitant]
  3. FIORICET [Concomitant]
  4. KLONOPIN [Concomitant]
  5. VIOXX [Concomitant]
  6. PROTONIX [Concomitant]
  7. ESTRACE [Concomitant]
  8. ZOCOR [Concomitant]
  9. PLAVIX [Concomitant]

REACTIONS (3)
  - BLADDER CANCER [None]
  - HAEMATOMA [None]
  - LYMPHADENOPATHY [None]
